FAERS Safety Report 14681582 (Version 1)
Quarter: 2018Q1

REPORT INFORMATION
  Report Type: Spontaneous
  Country: US (occurrence: US)
  Receive Date: 20180326
  Receipt Date: 20180326
  Transmission Date: 20180509
  Serious: No
  Sender: FDA-Public Use
  Company Number: US-KASTLE THERAPEUTICS, LLC-2018KAS000001

PATIENT
  Age: 69 Year
  Sex: Female

DRUGS (6)
  1. TYLENOL [Concomitant]
     Active Substance: ACETAMINOPHEN
     Indication: SPINAL OPERATION
  2. NAPROSYN [Concomitant]
     Active Substance: NAPROXEN
     Indication: SPINAL OPERATION
     Dosage: 250 MG TO 500 MG
     Route: 048
  3. PRALUENT [Concomitant]
     Active Substance: ALIROCUMAB
     Indication: HYPERCHOLESTEROLAEMIA
     Dates: start: 201711, end: 201711
  4. KYNAMRO [Suspect]
     Active Substance: MIPOMERSEN SODIUM
     Indication: OFF LABEL USE
  5. KYNAMRO [Suspect]
     Active Substance: MIPOMERSEN SODIUM
     Indication: BLOOD CHOLESTEROL INCREASED
     Route: 058
     Dates: start: 20171230
  6. HYDROCORTISONE/BUTYRATE [Concomitant]
     Indication: PRODUCT USED FOR UNKNOWN INDICATION

REACTIONS (6)
  - Fatigue [Unknown]
  - Decreased appetite [Unknown]
  - Injection site rash [Not Recovered/Not Resolved]
  - Abdominal discomfort [Unknown]
  - Injection site pain [Unknown]
  - Inappropriate schedule of drug administration [Not Recovered/Not Resolved]

NARRATIVE: CASE EVENT DATE: 20171230
